FAERS Safety Report 6528268-6 (Version None)
Quarter: 2010Q1

REPORT INFORMATION
  Report Type: 
  Country: None (occurrence: None)
  Receive Date: 20100106
  Receipt Date: 20091228
  Transmission Date: 20100710
  Serious: Yes (Other)
  Sender: FDA-Public Use
  Company Number: US-JNJFOC-20091207741

PATIENT
  Sex: Female
  Weight: 48.99 kg

DRUGS (7)
  1. FENTANYL [Suspect]
     Indication: SPINAL COLUMN STENOSIS
     Route: 062
  2. FENTANYL [Suspect]
     Route: 062
  3. FENTANYL [Suspect]
     Indication: BACK PAIN
     Route: 062
  4. FENTANYL [Suspect]
     Route: 062
  5. FENTANYL [Suspect]
     Indication: NECK PAIN
     Route: 062
  6. FENTANYL [Suspect]
     Route: 062
  7. TOPAMAX [Concomitant]
     Indication: MIGRAINE
     Route: 048

REACTIONS (3)
  - CIRCULATORY COLLAPSE [None]
  - INTRACRANIAL ANEURYSM [None]
  - PRODUCT QUALITY ISSUE [None]
